FAERS Safety Report 10547924 (Version 5)
Quarter: 2015Q1

REPORT INFORMATION
  Report Type: Spontaneous
  Country: US (occurrence: US)
  Receive Date: 20141028
  Receipt Date: 20150309
  Transmission Date: 20150720
  Serious: No
  Sender: FDA-Public Use
  Company Number: US-PFIZER INC-2014262470

PATIENT
  Age: 74 Year
  Sex: Male
  Weight: 63 kg

DRUGS (5)
  1. MECLIZINE HCL [Concomitant]
     Active Substance: MECLIZINE HYDROCHLORIDE
     Dosage: 12.5 MG, AS NEEDED
  2. METOPROLOL [Concomitant]
     Active Substance: METOPROLOL
     Dosage: UNK
  3. NEXIUM [Concomitant]
     Active Substance: ESOMEPRAZOLE MAGNESIUM
     Dosage: 40 MG, 1X/DAY AS DIRECTED
     Route: 048
  4. SUTENT [Suspect]
     Active Substance: SUNITINIB MALATE
     Indication: RENAL CELL CARCINOMA
     Dosage: 50 MG, 4 WEEKS ON FOLLOWED BY 2 WEEKS OFF
     Dates: start: 20140919, end: 20150204
  5. DOXAZOSIN [Concomitant]
     Active Substance: DOXAZOSIN\DOXAZOSIN MESYLATE
     Dosage: UNK, AS NEEDED

REACTIONS (19)
  - Cheilitis [Recovering/Resolving]
  - Weight decreased [Unknown]
  - Depressed mood [Unknown]
  - Haemorrhoidal haemorrhage [Unknown]
  - Blood potassium increased [Unknown]
  - Headache [Recovering/Resolving]
  - Abdominal pain [Unknown]
  - Dyspepsia [Unknown]
  - Anaemia [Unknown]
  - Hiccups [Unknown]
  - Renal cell carcinoma [Unknown]
  - Diarrhoea [Recovering/Resolving]
  - Nausea [Unknown]
  - Disease progression [Unknown]
  - Fatigue [Unknown]
  - Decreased appetite [Recovered/Resolved]
  - Actinic keratosis [Unknown]
  - Insomnia [Unknown]
  - Balance disorder [Unknown]

NARRATIVE: CASE EVENT DATE: 201409
